FAERS Safety Report 23289166 (Version 1)
Quarter: 2023Q4

REPORT INFORMATION
  Report Type: Spontaneous
  Country: US (occurrence: None)
  Receive Date: 20231211
  Receipt Date: 20231211
  Transmission Date: 20240110
  Serious: Yes (unspecified)
  Sender: FDA-Public Use
  Company Number: None

PATIENT
  Age: 11 Year
  Sex: Female
  Weight: 52.5 kg

DRUGS (1)
  1. REMDESIVIR [Suspect]
     Active Substance: REMDESIVIR
     Indication: COVID-19
     Route: 042
     Dates: start: 20231130, end: 20231202

REACTIONS (4)
  - International normalised ratio increased [None]
  - Aspartate aminotransferase increased [None]
  - Alanine aminotransferase increased [None]
  - Liver injury [None]

NARRATIVE: CASE EVENT DATE: 20231202
